FAERS Safety Report 10144570 (Version 1)
Quarter: 2014Q2

REPORT INFORMATION
  Report Type: Spontaneous
  Country: US (occurrence: US)
  Receive Date: 20140430
  Receipt Date: 20140430
  Transmission Date: 20141212
  Serious: Yes (Hospitalization, Other)
  Sender: FDA-Public Use
  Company Number: US-SANOFI-AVENTIS-2013SA072921

PATIENT
  Age: 60 Year
  Sex: Male
  Weight: 67.9 kg

DRUGS (3)
  1. LOVENOX [Suspect]
     Indication: PULMONARY EMBOLISM
     Route: 065
     Dates: start: 20110929, end: 20130301
  2. INVESTIGATIONAL DRUG [Suspect]
     Indication: ANAPLASTIC LYMPHOMA KINASE GENE MUTATION
     Route: 048
     Dates: start: 20130130, end: 20130301
  3. INVESTIGATIONAL DRUG [Suspect]
     Indication: ANAPLASTIC LYMPHOMA KINASE GENE MUTATION
     Dosage: 750
     Route: 048
     Dates: start: 20130102

REACTIONS (1)
  - Haemoptysis [Recovered/Resolved]
